FAERS Safety Report 6731618-9 (Version None)
Quarter: 2010Q2

REPORT INFORMATION
  Report Type: 
  Country: None (occurrence: None)
  Receive Date: 20100518
  Receipt Date: 20100518
  Transmission Date: 20101027
  Serious: Yes (Other)
  Sender: FDA-Public Use
  Company Number: None

PATIENT
  Age: 51 Year
  Sex: Female
  Weight: 77.1115 kg

DRUGS (2)
  1. AZULFIDINE [Suspect]
     Indication: RHEUMATOID ARTHRITIS
     Dosage: BID PO
     Route: 048
     Dates: start: 20091201, end: 20100216
  2. AZULFIDINE [Suspect]
     Indication: RHEUMATOID ARTHRITIS
     Dosage: BID PO
     Route: 048
     Dates: start: 20100513, end: 20100515

REACTIONS (2)
  - IRRITABLE BOWEL SYNDROME [None]
  - NAUSEA [None]
